FAERS Safety Report 15663109 (Version 1)
Quarter: 2018Q4

REPORT INFORMATION
  Report Type: Spontaneous
  Country: US (occurrence: US)
  Receive Date: 20181128
  Receipt Date: 20181128
  Transmission Date: 20190205
  Serious: No
  Sender: FDA-Public Use
  Company Number: US-SA-2018SA322769

PATIENT
  Age: 61 Year
  Sex: Male

DRUGS (1)
  1. KEVZARA [Suspect]
     Active Substance: SARILUMAB
     Indication: DERMATITIS
     Dosage: 200 MG, QOW
     Route: 058
     Dates: start: 20181031

REACTIONS (1)
  - Nasopharyngitis [Unknown]
